FAERS Safety Report 8817785 (Version 2)
Quarter: 2012Q4

REPORT INFORMATION
  Report Type: 
  Country: US (occurrence: US)
  Receive Date: 20121002
  Receipt Date: 20121113
  Transmission Date: 20130627
  Serious: Yes (Other)
  Sender: FDA-Public Use
  Company Number: US-SANOFI-AVENTIS-2012SA069433

PATIENT
  Age: 77 Year
  Sex: Female
  Weight: 110 kg

DRUGS (4)
  1. MULTAQ [Suspect]
     Indication: ATRIAL FIBRILLATION
     Route: 048
     Dates: start: 2009
  2. SYNTHROID [Concomitant]
     Indication: HYPOTHYROIDISM
     Dates: start: 1978
  3. LOPRESSOR [Concomitant]
     Indication: CARDIAC DISORDER
     Dates: start: 2008
  4. WARFARIN [Concomitant]
     Indication: CLOT BLOOD
     Dates: start: 2008

REACTIONS (2)
  - Urinary tract infection [Not Recovered/Not Resolved]
  - Blood uric acid increased [Recovered/Resolved]
